FAERS Safety Report 7603095-7 (Version None)
Quarter: 2011Q3

REPORT INFORMATION
  Report Type: 
  Country: None (occurrence: None)
  Receive Date: 20110711
  Receipt Date: 20110711
  Transmission Date: 20111222
  Serious: Yes (Other)
  Sender: FDA-Public Use
  Company Number: None

PATIENT
  Sex: Male
  Weight: 117.9352 kg

DRUGS (1)
  1. NIASPAN [Suspect]
     Indication: HYPERCHOLESTEROLAEMIA
     Dosage: 500NG 1 DAILY BUCCAL
     Route: 002
     Dates: start: 20080101, end: 20080115

REACTIONS (4)
  - LOSS OF CONSCIOUSNESS [None]
  - FLUSHING [None]
  - FALL [None]
  - HUMERUS FRACTURE [None]
